FAERS Safety Report 21773528 (Version 4)
Quarter: 2023Q1

REPORT INFORMATION
  Report Type: Report from Study
  Country: DE (occurrence: DE)
  Receive Date: 20221223
  Receipt Date: 20230328
  Transmission Date: 20230418
  Serious: Yes (Hospitalization)
  Sender: FDA-Public Use
  Company Number: DE-ABBVIE-4228004

PATIENT
  Age: 44 Year
  Sex: Female

DRUGS (14)
  1. SIMPONI [Suspect]
     Active Substance: GOLIMUMAB
     Indication: Product used for unknown indication
     Dosage: 50 MG, Q4W
     Route: 065
     Dates: start: 20220209, end: 20220309
  2. TREMFYA [Suspect]
     Active Substance: GUSELKUMAB
     Indication: Product used for unknown indication
     Dosage: FORM STRENGTH: 40 MILLIGRAM
     Route: 065
     Dates: start: 20220309
  3. TREMFYA [Suspect]
     Active Substance: GUSELKUMAB
  4. TREMFYA [Suspect]
     Active Substance: GUSELKUMAB
  5. RINVOQ [Suspect]
     Active Substance: UPADACITINIB
     Indication: Psoriatic arthropathy
     Route: 048
     Dates: start: 20220209, end: 20220421
  6. RINVOQ [Suspect]
     Active Substance: UPADACITINIB
     Route: 048
     Dates: start: 20211029, end: 20220105
  7. BUPIVACAINE HYDROCHLORIDE [Suspect]
     Active Substance: BUPIVACAINE HYDROCHLORIDE
     Indication: Product used for unknown indication
     Route: 014
  8. INFLIXIMAB [Suspect]
     Active Substance: INFLIXIMAB
     Indication: Product used for unknown indication
     Route: 065
     Dates: start: 20220106, end: 20220120
  9. ETORICOXIB [Concomitant]
     Active Substance: ETORICOXIB
     Indication: Product used for unknown indication
     Dosage: 120 MG, QD
     Route: 065
     Dates: start: 20220227
  10. ETORICOXIB [Concomitant]
     Active Substance: ETORICOXIB
     Dosage: 120 MG (0.14 WEEK)
     Route: 065
     Dates: start: 20211214, end: 20220218
  11. STELARA [Concomitant]
     Active Substance: USTEKINUMAB
     Indication: Product used for unknown indication
     Route: 065
     Dates: start: 20211223, end: 20211223
  12. BISOPROLOL [Concomitant]
     Active Substance: BISOPROLOL
     Indication: Product used for unknown indication
     Dosage: FORM STRENGTH: 5 MILLIGRAM
     Route: 065
  13. PANTOPRAZOLE [Concomitant]
     Active Substance: PANTOPRAZOLE
     Indication: Product used for unknown indication
     Dosage: FORM STRENGTH: 40 MILLIGRAM
     Route: 065
  14. CALCIUM WITH VITAMIN D [CALCIUM PHOSPHATE;CALCIUM SODIUM LACTATE;ERGOC [Concomitant]
     Indication: Product used for unknown indication

REACTIONS (7)
  - Psoriatic arthropathy [Recovered/Resolved]
  - Drug eruption [Recovered/Resolved]
  - Arthralgia [Recovered/Resolved]
  - Staphylococcal infection [Unknown]
  - Drug hypersensitivity [Recovered/Resolved]
  - Pruritus [Unknown]
  - Dyspnoea [Unknown]

NARRATIVE: CASE EVENT DATE: 20220101
